FAERS Safety Report 9307893 (Version 3)
Quarter: 2014Q2

REPORT INFORMATION
  Report Type: Spontaneous
  Country: US (occurrence: US)
  Receive Date: 20130524
  Receipt Date: 20140627
  Transmission Date: 20141212
  Serious: Yes (Hospitalization)
  Sender: FDA-Public Use
  Company Number: US-BAYER-2013-064483

PATIENT
  Age: 48 Year
  Sex: Female
  Weight: 49.89 kg

DRUGS (2)
  1. YASMIN [Suspect]
     Dosage: UNK
     Dates: start: 2007
  2. SYNTHROID [Concomitant]
     Dosage: 88 ?G, UNK

REACTIONS (12)
  - Subclavian vein thrombosis [None]
  - Pain [None]
  - Injury [None]
  - General physical health deterioration [None]
  - Emotional distress [None]
  - Pain [None]
  - Anxiety [None]
  - Anhedonia [None]
  - Hypoaesthesia [None]
  - Limb discomfort [None]
  - Pain in extremity [None]
  - Frustration [None]
